FAERS Safety Report 6090383-1 (Version None)
Quarter: 2009Q1

REPORT INFORMATION
  Report Type: 
  Country: None (occurrence: None)
  Receive Date: 20090220
  Receipt Date: 20090204
  Transmission Date: 20090719
  Serious: Yes (Hospitalization)
  Sender: FDA-Public Use
  Company Number: 8042993

PATIENT
  Age: 78 Year
  Sex: Female

DRUGS (5)
  1. PREDNISOLONE [Suspect]
     Indication: TEMPORAL ARTERITIS
     Dosage: 80 MG 1/D PO
     Route: 048
  2. PREDNISOLONE [Suspect]
     Indication: TEMPORAL ARTERITIS
     Dosage: 12.5 MG 1/D PO
     Route: 048
  3. METHYLPREDNISOLONE 4MG TAB [Suspect]
     Indication: TEMPORAL ARTERITIS
     Dosage: 250 MG 2/D IV
     Route: 042
  4. ALENDRONIC ACID [Concomitant]
  5. RANITIDINE [Concomitant]

REACTIONS (2)
  - DIABETES MELLITUS INADEQUATE CONTROL [None]
  - PANCREATITIS ACUTE [None]
